FAERS Safety Report 6330049-3 (Version None)
Quarter: 2009Q3

REPORT INFORMATION
  Report Type: 
  Country: None (occurrence: None)
  Receive Date: 20090825
  Receipt Date: 20090817
  Transmission Date: 20100115
  Serious: Yes (Death)
  Sender: FDA-Public Use
  Company Number: 2008AL012237

PATIENT
  Age: 82 Year
  Sex: Female

DRUGS (17)
  1. DIGOXIN [Suspect]
     Indication: HEART RATE IRREGULAR
     Dosage: 0.25MG, DAILY, PO
     Route: 048
  2. CARTIA XT [Concomitant]
  3. LASIX [Concomitant]
  4. COUMADIN [Concomitant]
  5. SYNTHROID [Concomitant]
  6. ALBUTEROL [Concomitant]
  7. POTASSIUM CHLORIDE [Concomitant]
  8. ALPRAZOLAM [Concomitant]
  9. KLOR-CON [Concomitant]
  10. TRAZODONE [Concomitant]
  11. ACETAMINOPHEN W/ CODEINE TAB [Concomitant]
  12. PREDNISONE [Concomitant]
  13. ERY-TAB [Concomitant]
  14. DIAZEPAM [Concomitant]
  15. HUMIBID [Concomitant]
  16. ......... [Concomitant]
  17. ZITHROMAX [Concomitant]

REACTIONS (22)
  - ACUTE MYOCARDIAL INFARCTION [None]
  - APALLIC SYNDROME [None]
  - APNOEA [None]
  - ARRHYTHMIA [None]
  - ARTHRITIS [None]
  - BONE NEOPLASM [None]
  - CARDIAC ARREST [None]
  - CIRCULATORY COLLAPSE [None]
  - DISCOMFORT [None]
  - ELECTROMECHANICAL DISSOCIATION [None]
  - FALL [None]
  - FATIGUE [None]
  - FEELING ABNORMAL [None]
  - INJURY [None]
  - LOSS OF CONSCIOUSNESS [None]
  - PAIN IN EXTREMITY [None]
  - PALPITATIONS [None]
  - PULSE ABSENT [None]
  - THERAPEUTIC AGENT TOXICITY [None]
  - TORSADE DE POINTES [None]
  - UNEVALUABLE EVENT [None]
  - VENTRICULAR FIBRILLATION [None]
